FAERS Safety Report 17810747 (Version 1)
Quarter: 2020Q2

REPORT INFORMATION
  Report Type: Spontaneous
  Country: US (occurrence: US)
  Receive Date: 20200521
  Receipt Date: 20200521
  Transmission Date: 20200714
  Serious: Yes (Other)
  Sender: FDA-Public Use
  Company Number: US-LUPIN PHARMACEUTICALS INC.-2020-02266

PATIENT
  Age: 13 Year
  Sex: Male

DRUGS (5)
  1. OLANZAPINE. [Interacting]
     Active Substance: OLANZAPINE
     Indication: AGITATION
     Dosage: 5 MILLIGRAM (ORALLY DISINTEGRATING TABLETS (ODT))
     Route: 048
  2. LISDEXAMFETAMINE [Interacting]
     Active Substance: LISDEXAMFETAMINE
     Indication: ATTENTION DEFICIT HYPERACTIVITY DISORDER
     Dosage: UNK (FOR SEVERAL MONTHS)
     Route: 065
  3. QUETIAPINE FUMARATE. [Suspect]
     Active Substance: QUETIAPINE FUMARATE
     Indication: ACUTE PSYCHOSIS
     Dosage: UNK
     Route: 065
  4. RISPERIDONE. [Interacting]
     Active Substance: RISPERIDONE
     Indication: PSYCHIATRIC DECOMPENSATION
     Dosage: UNK (CROSS-TAPER FROM RISPERIDONE TO QUETIAPINE.)
     Route: 065
  5. RISPERIDONE. [Interacting]
     Active Substance: RISPERIDONE
     Dosage: UNK, (FOR SEVERAL MONTHS)
     Route: 065

REACTIONS (3)
  - Oculogyric crisis [Recovered/Resolved]
  - Dystonia [Recovered/Resolved]
  - Drug interaction [Unknown]
